FAERS Safety Report 10154737 (Version 2)
Quarter: 2014Q2

REPORT INFORMATION
  Report Type: Spontaneous
  Country: US (occurrence: US)
  Receive Date: 20140506
  Receipt Date: 20140506
  Transmission Date: 20141212
  Serious: Yes (Hospitalization)
  Sender: FDA-Public Use
  Company Number: US-SA-FABR-1003498

PATIENT
  Age: 74 Year
  Sex: Female
  Weight: 57.14 kg

DRUGS (14)
  1. FABRAZYME [Suspect]
     Indication: FABRY^S DISEASE
     Dosage: 1.05 MG/KG, Q2W
     Route: 042
     Dates: start: 201207
  2. FABRAZYME [Suspect]
     Indication: FABRY^S DISEASE
     Dosage: 1.05 MG/KG, Q2W
     Route: 042
     Dates: start: 201207
  3. LEVOXYL [Concomitant]
     Indication: HYPOTHYROIDISM
     Dosage: 88 MCG, QD (EVERY NIGHT)
  4. LIPITOR [Concomitant]
     Indication: HYPERLIPIDAEMIA
     Dosage: 20 MG, QD
  5. COUMADIN [Concomitant]
     Indication: CARDIAC PACEMAKER INSERTION
     Dosage: 7.5 MG, QD
  6. VITAMIN D [Concomitant]
     Indication: NUTRITIONAL SUPPLEMENTATION
     Dosage: 1500 U, QD DOSE:1500 UNIT(S)
  7. ASPIRIN [Concomitant]
     Indication: CARDIAC PACEMAKER INSERTION
     Dosage: 325 MG, QD
  8. CITALOPRAM [Concomitant]
     Indication: DEPRESSION
     Dosage: 10 MG, QD
  9. METFORMIN [Concomitant]
     Indication: DIABETES MELLITUS
     Dosage: 500 MG, BID
  10. SITAGLIPTIN PHOSPHATE [Concomitant]
     Indication: DIABETES MELLITUS
     Dosage: 50 MG, BID
  11. TOPROL XL [Concomitant]
     Indication: CARDIAC FAILURE CONGESTIVE
     Dosage: 25 MG, QD (EVERY NIGHT)
  12. VITAMIN D3 [Concomitant]
     Dosage: 1000 U, UNK DOSE:1000 UNIT(S)
  13. INSULIN [Concomitant]
     Indication: DIABETES MELLITUS
     Dosage: 8 U, QD (9 AM) DOSE:8 UNIT(S)
     Route: 059
  14. HUMALOG [Concomitant]
     Dosage: 3 U, TID DOSE:3 UNIT(S)
     Route: 059

REACTIONS (2)
  - Fluid retention [Unknown]
  - Transient ischaemic attack [Recovered/Resolved]
